FAERS Safety Report 7982624-8 (Version None)
Quarter: 2011Q4

REPORT INFORMATION
  Report Type: 
  Country: None (occurrence: None)
  Receive Date: 20111215
  Receipt Date: 20111208
  Transmission Date: 20120403
  Serious: Yes (Other)
  Sender: FDA-Public Use
  Company Number: JP-GLAXOSMITHKLINE-B0768720A

PATIENT

DRUGS (5)
  1. ADONA (AC-17) [Concomitant]
     Route: 065
  2. PL [Suspect]
     Indication: NASOPHARYNGITIS
     Route: 048
  3. PROMACTA [Suspect]
     Indication: IDIOPATHIC THROMBOCYTOPENIC PURPURA
     Route: 048
  4. ACETAMINOPHEN [Suspect]
     Indication: NASOPHARYNGITIS
     Route: 065
  5. FLOMOX [Suspect]
     Indication: NASOPHARYNGITIS
     Route: 048

REACTIONS (1)
  - ALTERED STATE OF CONSCIOUSNESS [None]
